FAERS Safety Report 16402526 (Version 3)
Quarter: 2020Q1

REPORT INFORMATION
  Report Type: Spontaneous
  Country: DE (occurrence: DE)
  Receive Date: 20190607
  Receipt Date: 20200303
  Transmission Date: 20200409
  Serious: Yes (Death, Other)
  Sender: FDA-Public Use
  Company Number: DE-ROCHE-2327010

PATIENT
  Age: 56 Year
  Weight: 55 kg

DRUGS (3)
  1. NOVOSEVEN [Concomitant]
     Active Substance: COAGULATION FACTOR VIIA RECOMBINANT HUMAN
     Indication: SURGERY
     Route: 042
     Dates: start: 20190513, end: 20190513
  2. NOVOSEVEN [Concomitant]
     Active Substance: COAGULATION FACTOR VIIA RECOMBINANT HUMAN
     Indication: HAEMORRHAGE
  3. HEMLIBRA [Suspect]
     Active Substance: EMICIZUMAB-KXWH
     Indication: FACTOR VIII DEFICIENCY
     Route: 058
     Dates: start: 20190312, end: 20190511

REACTIONS (5)
  - Infection [Unknown]
  - Septic shock [Fatal]
  - Ascites [Unknown]
  - Cachexia [Unknown]
  - Haemorrhage [Unknown]
